FAERS Safety Report 15253551 (Version 2)
Quarter: 2018Q4

REPORT INFORMATION
  Report Type: Spontaneous
  Country: DE (occurrence: DE)
  Receive Date: 20180808
  Receipt Date: 20181004
  Transmission Date: 20190204
  Serious: No
  Sender: FDA-Public Use
  Company Number: DE-SUN PHARMACEUTICAL INDUSTRIES LTD-2018RR-180816

PATIENT
  Age: 1 Day
  Sex: Male
  Weight: 2.68 kg

DRUGS (4)
  1. VENLAFAXINE [Suspect]
     Active Substance: VENLAFAXINE HYDROCHLORIDE
     Indication: ANXIETY DISORDER
     Dosage: 150 [MG/D ]/ INITIAL 125MG/D, DOSAGE INCREASE 150MG/D, NOT SURE IF DOSAGE REDUCTION BEFORE DELIVE...
     Route: 064
     Dates: start: 20160901, end: 20170426
  2. FEMIBION SCHWANGERSCHAFT 1 [Concomitant]
     Indication: PROPHYLAXIS OF NEURAL TUBE DEFECT
     Dosage: 0.8 [MG/D ] ()
     Route: 064
     Dates: start: 20160901, end: 20170426
  3. METOPROLOL. [Concomitant]
     Active Substance: METOPROLOL
     Indication: TACHYCARDIA
     Dosage: 47.5 [MG/D ]
     Route: 064
  4. PROTAPHANE [Concomitant]
     Active Substance: INSULIN HUMAN
     Indication: GESTATIONAL DIABETES
     Dosage: ()
     Route: 064

REACTIONS (4)
  - Microtia [Not Recovered/Not Resolved]
  - Patent ductus arteriosus [Recovered/Resolved]
  - External auditory canal atresia [Not Recovered/Not Resolved]
  - Meningocele [Recovered/Resolved with Sequelae]

NARRATIVE: CASE EVENT DATE: 20170426
